FAERS Safety Report 20090609 (Version 1)
Quarter: 2021Q4

REPORT INFORMATION
  Report Type: Report from Study
  Country: CA (occurrence: CA)
  Receive Date: 20211119
  Receipt Date: 20211119
  Transmission Date: 20220303
  Serious: Yes (Other)
  Sender: FDA-Public Use
  Company Number: CA-002147023-NVSC2021CA256553

PATIENT

DRUGS (1)
  1. RUXOLITINIB [Suspect]
     Active Substance: RUXOLITINIB
     Indication: Myelofibrosis
     Dosage: UNK UNK, BID
     Route: 065

REACTIONS (13)
  - Anaemia [Unknown]
  - Thrombosis [Unknown]
  - Contusion [Unknown]
  - Depression [Unknown]
  - Insomnia [Unknown]
  - Fatigue [Unknown]
  - Product dose omission issue [Unknown]
  - Night sweats [Unknown]
  - Epistaxis [Unknown]
  - Paraesthesia [Unknown]
  - Dyspnoea [Unknown]
  - Drug ineffective [Unknown]
  - Asthenia [Unknown]
